FAERS Safety Report 9646669 (Version 1)
Quarter: 2013Q4

REPORT INFORMATION
  Report Type: Spontaneous
  Country: US (occurrence: US)
  Receive Date: 20131026
  Receipt Date: 20131026
  Transmission Date: 20140711
  Serious: No
  Sender: FDA-Public Use
  Company Number: US-009507513-1310USA010470

PATIENT
  Sex: Male
  Weight: 126.98 kg

DRUGS (2)
  1. ZEGERID OTC CAPSULES [Suspect]
     Indication: GASTROOESOPHAGEAL REFLUX DISEASE
     Dosage: 20 MG, PRN
     Route: 048
     Dates: start: 201304, end: 201310
  2. ZEGERID OTC CAPSULES [Suspect]
     Indication: DYSPEPSIA

REACTIONS (1)
  - Inappropriate schedule of drug administration [Unknown]
